FAERS Safety Report 10955867 (Version 1)
Quarter: 2015Q1

REPORT INFORMATION
  Report Type: Other
  Country: DE (occurrence: DE)
  Receive Date: 20150326
  Receipt Date: 20150326
  Transmission Date: 20150721
  Serious: Yes (Other)
  Sender: FDA-Public Use
  Company Number: DE-MYLANLABS-2015M1008235

PATIENT

DRUGS (3)
  1. PAROXETINE HYDROCHLORIDE. [Suspect]
     Active Substance: PAROXETINE HYDROCHLORIDE
     Indication: DEPRESSION
     Dosage: 40 [MG/D (BIS 20) ]
     Route: 064
     Dates: start: 20130715, end: 20140313
  2. SALBUTAMOL [Concomitant]
     Active Substance: ALBUTEROL
     Indication: ASTHMA
     Dosage: ON DEMAND
     Route: 064
  3. FOLIO FORTE [Concomitant]
     Active Substance: FOLIC ACID\VITAMINS
     Indication: PROPHYLAXIS OF NEURAL TUBE DEFECT
     Dosage: 0.8 [MG/D ]
     Route: 064

REACTIONS (3)
  - Intraventricular haemorrhage neonatal [Recovering/Resolving]
  - Foetal exposure during pregnancy [Recovering/Resolving]
  - Premature baby [Recovering/Resolving]

NARRATIVE: CASE EVENT DATE: 20140313
